FAERS Safety Report 15074983 (Version 2)
Quarter: 2023Q4

REPORT INFORMATION
  Report Type: Spontaneous
  Country: US (occurrence: US)
  Receive Date: 20180627
  Receipt Date: 20231128
  Transmission Date: 20240109
  Serious: Yes (Other)
  Sender: FDA-Public Use
  Company Number: US-SAOL THERAPEUTICS-2017SAO01741

PATIENT
  Sex: Female

DRUGS (1)
  1. BACLOFEN [Suspect]
     Active Substance: BACLOFEN
     Indication: Muscle spasticity
     Dosage: 820 ?G, \DAY
     Route: 037

REACTIONS (3)
  - Arachnoiditis [Not Recovered/Not Resolved]
  - Device dislocation [Unknown]
  - Device telemetry issue [Recovered/Resolved]

NARRATIVE: CASE EVENT DATE: 20170101
